FAERS Safety Report 20930060 (Version 1)
Quarter: 2022Q2

REPORT INFORMATION
  Report Type: Spontaneous
  Country: US (occurrence: US)
  Receive Date: 20220608
  Receipt Date: 20220608
  Transmission Date: 20220721
  Serious: Yes (Other)
  Sender: FDA-Public Use
  Company Number: US-BRISTOL-MYERS SQUIBB COMPANY-2022-047165

PATIENT
  Age: 71 Year
  Sex: Female

DRUGS (1)
  1. SPRYCEL [Suspect]
     Active Substance: DASATINIB
     Indication: Product used for unknown indication
     Dates: start: 202005

REACTIONS (6)
  - Neuropathic arthropathy [Unknown]
  - Muscle tightness [Unknown]
  - Axillary mass [Unknown]
  - Morton^s neuralgia [Unknown]
  - Skin discolouration [Unknown]
  - Arthritis [Unknown]

NARRATIVE: CASE EVENT DATE: 20210201
